FAERS Safety Report 25804191 (Version 3)
Quarter: 2025Q4

REPORT INFORMATION
  Report Type: Spontaneous
  Country: EG (occurrence: EG)
  Receive Date: 20250915
  Receipt Date: 20251103
  Transmission Date: 20260117
  Serious: Yes (Hospitalization, Other)
  Sender: NOVO NORDISK
  Company Number: EG-NOVOPROD-1513949

PATIENT
  Age: 668 Month
  Sex: Female
  Weight: 87 kg

DRUGS (6)
  1. METHYLCOBALAMIN [Concomitant]
     Active Substance: METHYLCOBALAMIN
     Indication: Vitamin supplementation
     Dosage: ONCE / DAY AT MORNING
     Route: 048
  2. NOVORAPID [Suspect]
     Active Substance: INSULIN ASPART
     Indication: Type 1 diabetes mellitus
     Dosage: UNK
     Route: 058
  3. CHOLEROSE PLUS [Concomitant]
     Indication: Hypercholesterolaemia
     Dosage: 1 TAB/DAY AT NIGHT
     Route: 048
  4. TRESIBA [Suspect]
     Active Substance: INSULIN DEGLUDEC
     Dosage: 35 IU, QD (ONCE AT NIGHT)
     Route: 058
  5. TRESIBA [Suspect]
     Active Substance: INSULIN DEGLUDEC
     Indication: Type 1 diabetes mellitus
     Dosage: 25 U
     Route: 058
  6. DIMRA [Concomitant]
     Indication: Antiinflammatory therapy
     Dosage: 1 TAB AT NIGHT IF NEEDED

REACTIONS (5)
  - Osteoarthritis [Not Recovered/Not Resolved]
  - Intervertebral disc protrusion [Not Recovered/Not Resolved]
  - Procedural pain [Not Recovered/Not Resolved]
  - Hyperglycaemia [Not Recovered/Not Resolved]
  - Inflammation [Not Recovered/Not Resolved]

NARRATIVE: CASE EVENT DATE: 20241006
